FAERS Safety Report 13247409 (Version 1)
Quarter: 2017Q1

REPORT INFORMATION
  Report Type: Report from Study
  Country: BR (occurrence: BR)
  Receive Date: 20170217
  Receipt Date: 20170217
  Transmission Date: 20170428
  Serious: Yes (Death, Other)
  Sender: FDA-Public Use
  Company Number: PHHY2017BR025718

PATIENT
  Sex: Male
  Weight: 75 kg

DRUGS (1)
  1. EXELON PATCH [Suspect]
     Active Substance: RIVASTIGMINE
     Indication: DEMENTIA ALZHEIMER^S TYPE
     Dosage: 9.5 MG, (PATCH 10 (CM2)) QD (AT NIGHT)
     Route: 062

REACTIONS (4)
  - Mobility decreased [Recovering/Resolving]
  - Pneumonia [Unknown]
  - Malaise [Unknown]
  - Infection [Fatal]
